FAERS Safety Report 9850302 (Version 1)
Quarter: 2013Q4

REPORT INFORMATION
  Report Type: Spontaneous
  Country: US (occurrence: None)
  Receive Date: 20131226
  Receipt Date: 20131226
  Transmission Date: 20140711
  Serious: Yes (Other)
  Sender: FDA-Public Use
  Company Number: PHEH2013US012658

PATIENT
  Age: 75 Year
  Sex: Female

DRUGS (1)
  1. SANDOSTATIN LAR DEPOT [Suspect]
     Indication: CARCINOID SYNDROME
     Route: 030
     Dates: start: 20060615

REACTIONS (5)
  - Cholelithiasis [None]
  - Weight increased [None]
  - Injection site swelling [None]
  - Abdominal distension [None]
  - Alopecia [None]
